FAERS Safety Report 17688831 (Version 1)
Quarter: 2020Q2

REPORT INFORMATION
  Report Type: Spontaneous
  Country: KR (occurrence: KR)
  Receive Date: 20200421
  Receipt Date: 20200421
  Transmission Date: 20200714
  Serious: Yes (Life-Threatening, Other)
  Sender: FDA-Public Use
  Company Number: NVSC2020KR105810

PATIENT
  Age: 62 Year
  Sex: Female

DRUGS (4)
  1. PALBOCICLIB [Suspect]
     Active Substance: PALBOCICLIB
     Indication: BREAST CANCER METASTATIC
     Dosage: 150 MG
     Route: 065
     Dates: start: 201804
  2. LETROZOLE. [Suspect]
     Active Substance: LETROZOLE
     Indication: BREAST CANCER METASTATIC
     Dosage: 2.5 MG
     Route: 065
     Dates: start: 201804
  3. LETROZOLE. [Suspect]
     Active Substance: LETROZOLE
     Dosage: UNK
     Route: 065
  4. PALBOCICLIB [Suspect]
     Active Substance: PALBOCICLIB
     Dosage: 100 MG
     Route: 065
     Dates: start: 201811

REACTIONS (8)
  - Anaemia [Not Recovered/Not Resolved]
  - Neutropenia [Unknown]
  - Neutropenia [Recovering/Resolving]
  - Pyrexia [Unknown]
  - Breast cancer metastatic [Unknown]
  - Thrombocytopenia [Not Recovered/Not Resolved]
  - Contusion [Unknown]
  - Second primary malignancy [Unknown]
